FAERS Safety Report 5480864-3 (Version None)
Quarter: 2007Q4

REPORT INFORMATION
  Report Type: 
  Country: None (occurrence: None)
  Receive Date: 20071009
  Receipt Date: 20071005
  Transmission Date: 20080405
  Serious: Yes (Death)
  Sender: FDA-Public Use
  Company Number: KE-GILEAD-2007-0013679

PATIENT
  Sex: Female
  Weight: 1.4 kg

DRUGS (11)
  1. EMTRICITABINE/TENOFOVIR DISOPROXIL FUMARATE [Suspect]
     Indication: DRUG EXPOSURE DURING PREGNANCY
     Route: 064
     Dates: start: 20060929, end: 20070828
  2. LOPINAVIR AND RITONAVIR [Suspect]
     Indication: DRUG EXPOSURE DURING PREGNANCY
     Route: 064
     Dates: start: 20061107, end: 20070828
  3. NEVIRAPINE [Suspect]
     Indication: DRUG EXPOSURE DURING PREGNANCY
     Route: 064
     Dates: start: 20060929, end: 20061030
  4. VITACAP [Concomitant]
     Indication: DRUG EXPOSURE DURING PREGNANCY
     Route: 064
     Dates: end: 20070828
  5. ZINACEF [Concomitant]
     Indication: DRUG EXPOSURE DURING PREGNANCY
     Route: 064
     Dates: end: 20070828
  6. METRONIDAZOLE [Concomitant]
     Indication: DRUG EXPOSURE DURING PREGNANCY
     Route: 064
     Dates: end: 20070828
  7. CEFTRIAXONE [Concomitant]
     Indication: SEPSIS NEONATAL
     Route: 042
     Dates: start: 20070828
  8. AMIKACIN [Concomitant]
     Indication: SEPSIS NEONATAL
     Route: 042
     Dates: start: 20070828
  9. VITAMIN K [Concomitant]
     Route: 065
  10. NEVIRAPINE [Concomitant]
     Indication: PROPHYLAXIS AGAINST HIV INFECTION
     Route: 065
  11. ZIDOVUDINE [Concomitant]
     Indication: PROPHYLAXIS AGAINST HIV INFECTION
     Route: 065
     Dates: end: 20070828

REACTIONS (1)
  - DEATH NEONATAL [None]
